FAERS Safety Report 24439870 (Version 3)
Quarter: 2024Q4

REPORT INFORMATION
  Report Type: Spontaneous
  Country: US (occurrence: US)
  Receive Date: 20241015
  Receipt Date: 20241126
  Transmission Date: 20250114
  Serious: Yes (Other)
  Sender: AMGEN
  Company Number: US-AMGEN-USASP2024202842

PATIENT

DRUGS (2)
  1. TEPEZZA [Suspect]
     Active Substance: TEPROTUMUMAB-TRBW
     Indication: Endocrine ophthalmopathy
     Dosage: UNK (16 TEPEZZA TREATMENTS )
     Route: 065
  2. METHIMAZOLE [Concomitant]
     Active Substance: METHIMAZOLE

REACTIONS (2)
  - Endocrine ophthalmopathy [Not Recovered/Not Resolved]
  - Off label use [Unknown]
